FAERS Safety Report 12499667 (Version 2)
Quarter: 2016Q4

REPORT INFORMATION
  Report Type: Spontaneous
  Country: US (occurrence: US)
  Receive Date: 20160627
  Receipt Date: 20161214
  Transmission Date: 20170207
  Serious: Yes (Other)
  Sender: FDA-Public Use
  Company Number: US-SA-2016SA116452

PATIENT
  Age: 26 Year
  Sex: Female

DRUGS (2)
  1. VASELINE PURE [Concomitant]
     Active Substance: PETROLATUM
     Dates: start: 20160618
  2. ICY HOT MEDICATED NO MESS APPLICATOR [Suspect]
     Active Substance: MENTHOL
     Indication: BACK PAIN
     Dosage: DOSAGE FORM:ROLLED ON SOLUTION
     Route: 065
     Dates: start: 20160614, end: 20160615

REACTIONS (3)
  - Application site burn [Recovering/Resolving]
  - Pain [Unknown]
  - Application site scar [Unknown]

NARRATIVE: CASE EVENT DATE: 20160615
